FAERS Safety Report 20114333 (Version 1)
Quarter: 2021Q4

REPORT INFORMATION
  Report Type: Report from Study
  Country: CA (occurrence: CA)
  Receive Date: 20211125
  Receipt Date: 20211125
  Transmission Date: 20220303
  Serious: Yes (Other)
  Sender: FDA-Public Use
  Company Number: CA-NOVARTISPH-NVSC2021CA261465

PATIENT
  Sex: Female

DRUGS (7)
  1. CLOBETASOL [Suspect]
     Active Substance: CLOBETASOL
     Indication: Product used for unknown indication
     Dosage: UNK
     Route: 061
     Dates: start: 2006
  2. OXYCODONE [Suspect]
     Active Substance: OXYCODONE
     Indication: Product used for unknown indication
     Dosage: UNK
     Route: 048
     Dates: start: 202108, end: 202109
  3. TALTZ [Concomitant]
     Active Substance: IXEKIZUMAB
     Indication: Product used for unknown indication
     Dosage: UNK
     Route: 058
     Dates: start: 2021, end: 202106
  4. CIMZIA [Concomitant]
     Active Substance: CERTOLIZUMAB PEGOL
     Indication: Product used for unknown indication
     Dosage: UNK
     Route: 058
     Dates: start: 202107, end: 202109
  5. METHOTREXATE [Concomitant]
     Active Substance: METHOTREXATE
     Indication: Product used for unknown indication
     Dosage: UNK
     Route: 061
     Dates: start: 2009, end: 2010
  6. BETAMETHASONE\CALCIPOTRIENE [Concomitant]
     Active Substance: BETAMETHASONE\CALCIPOTRIENE
     Indication: Product used for unknown indication
     Dosage: UNK
     Route: 061
     Dates: start: 2006
  7. CORTISONE [Concomitant]
     Active Substance: CORTISONE
     Indication: Product used for unknown indication
     Dosage: UNK
     Route: 065
     Dates: start: 2021

REACTIONS (16)
  - Psoriatic arthropathy [Unknown]
  - Inflammatory pain [Unknown]
  - Pain [Unknown]
  - Dysstasia [Unknown]
  - Joint range of motion decreased [Unknown]
  - Muscular weakness [Unknown]
  - Motor dysfunction [Unknown]
  - Depression [Unknown]
  - Anxiety [Unknown]
  - Hypertension [Unknown]
  - Scoliosis [Unknown]
  - Pruritus [Unknown]
  - Pain of skin [Unknown]
  - Emotional distress [Unknown]
  - Self-consciousness [Unknown]
  - Drug ineffective [Unknown]

NARRATIVE: CASE EVENT DATE: 20090101
